FAERS Safety Report 16415166 (Version 2)
Quarter: 2019Q2

REPORT INFORMATION
  Report Type: Spontaneous
  Country: US (occurrence: US)
  Receive Date: 20190611
  Receipt Date: 20190621
  Transmission Date: 20190711
  Serious: No
  Sender: FDA-Public Use
  Company Number: US-PFIZER INC-2019247725

PATIENT
  Sex: Female

DRUGS (1)
  1. DOCETAXEL. [Suspect]
     Active Substance: DOCETAXEL
     Dosage: UNK
     Dates: start: 20111228, end: 20120207

REACTIONS (7)
  - Emotional distress [Unknown]
  - Madarosis [Unknown]
  - Disturbance in social behaviour [Unknown]
  - Self esteem decreased [Unknown]
  - Discomfort [Unknown]
  - Depressed mood [Unknown]
  - Alopecia [Unknown]

NARRATIVE: CASE EVENT DATE: 20120807
